FAERS Safety Report 5823048-9 (Version None)
Quarter: 2008Q3

REPORT INFORMATION
  Report Type: 
  Country: None (occurrence: None)
  Receive Date: 20080725
  Receipt Date: 20070823
  Transmission Date: 20090109
  Serious: No
  Sender: FDA-Public Use
  Company Number: US-AMGEN-KDL240061

PATIENT
  Sex: Female

DRUGS (4)
  1. EPOGEN [Suspect]
     Indication: ANAEMIA
  2. GASTROINTESTINAL MEDICATION NOS [Suspect]
  3. UNSPECIFIED BETA BLOCKER [Concomitant]
     Dates: start: 20070801
  4. METOCLOPRAMIDE HYDROCHLORIDE [Concomitant]
     Dates: start: 20070801

REACTIONS (2)
  - ABDOMINAL PAIN [None]
  - NAUSEA [None]
